FAERS Safety Report 11449863 (Version 1)
Quarter: 2015Q3

REPORT INFORMATION
  Report Type: Spontaneous
  Country: US (occurrence: US)
  Receive Date: 20150903
  Receipt Date: 20150903
  Transmission Date: 20151125
  Serious: Yes (Other)
  Sender: FDA-Public Use
  Company Number: US-ROCHE-1083452

PATIENT
  Sex: Female

DRUGS (3)
  1. PEGASYS [Suspect]
     Active Substance: PEGINTERFERON ALFA-2A
     Indication: CHRONIC HEPATITIS C
     Route: 065
     Dates: start: 20120615
  2. TELAPREVIR [Suspect]
     Active Substance: TELAPREVIR
     Indication: CHRONIC HEPATITIS C
     Route: 065
     Dates: start: 20120615
  3. RIBAVIRIN (NON-ROCHE/NON-COMPARATOR) [Suspect]
     Active Substance: RIBAVIRIN
     Indication: CHRONIC HEPATITIS C
     Dosage: ONE IN MORNING AND ONE IN EVENING
     Route: 065
     Dates: start: 20120615

REACTIONS (8)
  - White blood cell count decreased [Unknown]
  - Abdominal pain [Unknown]
  - Haemorrhoids [Unknown]
  - Influenza like illness [Unknown]
  - Nausea [Unknown]
  - Hyperhidrosis [Unknown]
  - Oral herpes [Unknown]
  - Platelet count decreased [Unknown]
